FAERS Safety Report 5574692-8 (Version None)
Quarter: 2007Q4

REPORT INFORMATION
  Report Type: 
  Country: None (occurrence: None)
  Receive Date: 20071227
  Receipt Date: 20071218
  Transmission Date: 20080405
  Serious: Yes (Hospitalization)
  Sender: FDA-Public Use
  Company Number: JP-BAYER-200710794BYL

PATIENT
  Age: 66 Year
  Sex: Male
  Weight: 57 kg

DRUGS (16)
  1. BAY43-9006 [Suspect]
     Indication: RENAL CELL CARCINOMA STAGE UNSPECIFIED
     Dosage: TOTAL DAILY DOSE: 800 MG  UNIT DOSE: 400 MG
     Route: 048
     Dates: start: 20070507, end: 20071021
  2. INTRON A [Suspect]
     Indication: RENAL CELL CARCINOMA STAGE UNSPECIFIED
     Route: 042
     Dates: start: 20070423, end: 20070504
  3. INTRON A [Suspect]
     Route: 042
     Dates: start: 20070507, end: 20071021
  4. CABAGIN [Concomitant]
     Route: 048
  5. KENTAN [Concomitant]
     Route: 048
     Dates: start: 20070508
  6. SANDONORM [Concomitant]
     Route: 048
  7. ZANTAC [Concomitant]
     Route: 048
     Dates: start: 20070514
  8. SEPAMIT R [Concomitant]
     Route: 048
     Dates: start: 20070514
  9. RENIVEZE [Concomitant]
     Route: 048
     Dates: start: 20070514
  10. TAMBOCOR [Concomitant]
     Route: 048
     Dates: start: 20070514
  11. FERO-GRADUMET [Concomitant]
     Route: 048
     Dates: start: 20071011, end: 20071023
  12. AFTACH [Concomitant]
     Route: 061
  13. DEXALTIN [Concomitant]
     Route: 061
  14. HACHIAZULE [Concomitant]
     Route: 002
  15. PRIMPERAN INJ [Concomitant]
     Route: 048
     Dates: start: 20071025
  16. AMOBAN [Concomitant]
     Route: 048
     Dates: start: 20071028

REACTIONS (13)
  - ADRENAL INSUFFICIENCY [None]
  - DELIRIUM [None]
  - DEPRESSION [None]
  - HALLUCINATION [None]
  - HEPATIC FUNCTION ABNORMAL [None]
  - HYPONATRAEMIA [None]
  - HYPOTHYROIDISM [None]
  - IRON DEFICIENCY ANAEMIA [None]
  - MALAISE [None]
  - MALIGNANT NEOPLASM PROGRESSION [None]
  - NEUROLOGICAL SYMPTOM [None]
  - PYREXIA [None]
  - RENAL CELL CARCINOMA STAGE UNSPECIFIED [None]
